FAERS Safety Report 9911424 (Version 1)
Quarter: 2014Q1

REPORT INFORMATION
  Report Type: Spontaneous
  Country: US (occurrence: US)
  Receive Date: 20140219
  Receipt Date: 20140219
  Transmission Date: 20141002
  Serious: Yes (Other)
  Sender: FDA-Public Use
  Company Number: PHEH2014US003219

PATIENT
  Sex: Female

DRUGS (2)
  1. SANDOSTATIN LAR DEPOT [Suspect]
     Dosage: UNK UKN, UNK
  2. VITAMIN D [Concomitant]
     Dosage: UNK UKN, UNK

REACTIONS (14)
  - Carcinoid tumour [Unknown]
  - Malaise [Unknown]
  - Vitamin D abnormal [Unknown]
  - Flushing [Unknown]
  - Feeling abnormal [Unknown]
  - Discomfort [Unknown]
  - Nausea [Unknown]
  - Abdominal pain upper [Unknown]
  - Constipation [Unknown]
  - Back pain [Unknown]
  - Vomiting [Unknown]
  - Faeces pale [Unknown]
  - Diarrhoea [Unknown]
  - Headache [Unknown]
